FAERS Safety Report 13258369 (Version 1)
Quarter: 2017Q1

REPORT INFORMATION
  Report Type: Spontaneous
  Country: VE (occurrence: VE)
  Receive Date: 20170222
  Receipt Date: 20170222
  Transmission Date: 20170428
  Serious: Yes (Other)
  Sender: FDA-Public Use
  Company Number: VE-BAXTER-2017BAX006412

PATIENT
  Age: 49 Year
  Sex: Female

DRUGS (8)
  1. ONDANSETRON [Suspect]
     Active Substance: ONDANSETRON
     Indication: DRUG TOXICITY PROPHYLAXIS
     Route: 065
  2. HOLOXAN 1G INYECTABLE [Suspect]
     Active Substance: IFOSFAMIDE
     Indication: NON-HODGKIN^S LYMPHOMA
     Dosage: CYCLIC AT 5 G/M2 AS A 24 HOURS INFUSION, DAY 2
     Route: 065
  3. ETOPOSIDE. [Suspect]
     Active Substance: ETOPOSIDE
     Indication: NON-HODGKIN^S LYMPHOMA
     Dosage: 100 MG/M2 CYCLIC, ALSO REPORTED AS 100 MG PER DAY FROM DAY 3 TO DAY 5
     Route: 065
  4. CARBOPLATIN. [Suspect]
     Active Substance: CARBOPLATIN
     Indication: NON-HODGKIN^S LYMPHOMA
     Dosage: ADMINISTRATION AT AUC 5, CYCLIC DAY 4
     Route: 065
  5. NEUPOGEN [Suspect]
     Active Substance: FILGRASTIM
     Indication: PRODUCT USED FOR UNKNOWN INDICATION
     Dosage: CYCLIC FROM DAY 6 TO DAY 15
     Route: 065
  6. EMEND [Suspect]
     Active Substance: APREPITANT
     Indication: DRUG TOXICITY PROPHYLAXIS
     Route: 065
  7. RITUXIMAB [Suspect]
     Active Substance: RITUXIMAB
     Indication: NON-HODGKIN^S LYMPHOMA
     Dosage: CYCLIC (DAY 1)
     Route: 065
  8. UROMITEXAN AMPOLLAS [Suspect]
     Active Substance: MESNA
     Indication: NON-HODGKIN^S LYMPHOMA
     Dosage: CYCLIC AT 5 G/M2, DAY 2
     Route: 065

REACTIONS (4)
  - Treatment failure [None]
  - Neutropenia [Unknown]
  - Product availability issue [None]
  - Lung disorder [Unknown]
